FAERS Safety Report 7946981-0 (Version None)
Quarter: 2011Q4

REPORT INFORMATION
  Report Type: 
  Country: None (occurrence: None)
  Receive Date: 20111129
  Receipt Date: 20111116
  Transmission Date: 20120403
  Serious: No
  Sender: FDA-Public Use
  Company Number: US-ELI_LILLY_AND_COMPANY-US201110002312

PATIENT
  Sex: Female
  Weight: 52 kg

DRUGS (13)
  1. FORTEO [Suspect]
     Indication: OSTEOPOROSIS
     Dosage: 20 UG, QD
     Route: 058
     Dates: start: 20110803
  2. SYNTHROID [Concomitant]
  3. VITAMIN D [Concomitant]
  4. TYLENOL (CAPLET) [Concomitant]
  5. PRAVACHOL [Concomitant]
  6. NEUROTIN                           /00949202/ [Concomitant]
  7. LORTAB [Concomitant]
  8. ASPIRIN [Concomitant]
  9. VITAMIN E                            /001105/ [Concomitant]
  10. NEXIUM [Concomitant]
  11. CELECOXIB [Concomitant]
  12. TOPROL-XL [Concomitant]
  13. ASCORBIC ACID [Concomitant]

REACTIONS (1)
  - NO ADVERSE EVENT [None]
